FAERS Safety Report 6917291-5 (Version None)
Quarter: 2010Q3

REPORT INFORMATION
  Report Type: 
  Country: None (occurrence: None)
  Receive Date: 20100721
  Receipt Date: 20100330
  Transmission Date: 20110219
  Serious: No
  Sender: FDA-Public Use
  Company Number: 2010AL000074

PATIENT
  Sex: Female

DRUGS (1)
  1. FOLOTYN [Suspect]
     Indication: PERIPHERAL T-CELL LYMPHOMA UNSPECIFIED
     Dosage: 30 MG/M**2;QW;IV
     Route: 042

REACTIONS (1)
  - HYPERSENSITIVITY [None]
